FAERS Safety Report 25337465 (Version 1)
Quarter: 2025Q2

REPORT INFORMATION
  Report Type: Spontaneous
  Country: CN (occurrence: CN)
  Receive Date: 20250520
  Receipt Date: 20250520
  Transmission Date: 20250717
  Serious: Yes (Hospitalization)
  Sender: BAYER HEALTHCARE PHARMACEUTICALS INC.
  Company Number: CN-BAYER-2025A066362

PATIENT
  Age: 66 Year
  Sex: Male
  Weight: 60 kg

DRUGS (1)
  1. KERENDIA [Suspect]
     Active Substance: FINERENONE
     Indication: Diabetic nephropathy
     Dosage: 10 MG, QD
     Route: 048
     Dates: start: 20241025, end: 20250418

REACTIONS (4)
  - Hyperkalaemia [Recovered/Resolved]
  - Asthenia [None]
  - Respiratory rate increased [None]
  - Functional gastrointestinal disorder [None]

NARRATIVE: CASE EVENT DATE: 20250415
